FAERS Safety Report 7822079-7 (Version None)
Quarter: 2011Q4

REPORT INFORMATION
  Report Type: 
  Country: None (occurrence: None)
  Receive Date: 20111018
  Receipt Date: 20111012
  Transmission Date: 20120403
  Serious: Yes (Hospitalization, Other)
  Sender: FDA-Public Use
  Company Number: PHEH2006US11384

PATIENT
  Sex: Male

DRUGS (41)
  1. AREDIA [Suspect]
     Indication: LUNG NEOPLASM MALIGNANT
     Dosage: PER 30 MG/ 3 UNITS
     Dates: start: 20010701
  2. RADIATION THERAPY [Concomitant]
     Dosage: UNK
     Dates: start: 20040101
  3. PACLITAXEL [Concomitant]
     Dosage: 30 MG, 12 UNITS
  4. PERCOCET [Concomitant]
  5. ASMANEX TWISTHALER [Concomitant]
  6. ZYMAR [Concomitant]
  7. ANTINEOPLASTIC AGENTS [Concomitant]
     Dosage: UNK
     Dates: start: 20040101
  8. ZOCOR [Concomitant]
  9. ASPIRIN [Concomitant]
     Dosage: 160 / DAILY
  10. M.V.I. [Concomitant]
     Dosage: UNK
  11. SIMVASTATIN [Concomitant]
     Dosage: UNK
     Route: 048
  12. FLONASE [Concomitant]
  13. COMBIVENT [Concomitant]
  14. TEVETEN HCT [Concomitant]
     Dosage: 600/12.5 MG ONE DAILY
  15. ZOMETA [Suspect]
     Indication: METASTASES TO BONE
     Dosage: 4 MG, UNK
  16. SODIUM CHLORIDE [Concomitant]
     Dosage: 250 ML, UNK
     Route: 042
  17. GLIPIZIDE [Concomitant]
     Dosage: 10 / DAILY
  18. TAXOTERE [Concomitant]
  19. ONDANSETRON [Concomitant]
     Dosage: 24 MG, PRN
     Route: 048
  20. LIPITOR [Concomitant]
     Dosage: 20 / DAILY
  21. GRANISETRON HCL [Concomitant]
     Dosage: 1 MG, 2 UNITS
  22. NEULASTA [Concomitant]
  23. LOVASTATIN [Concomitant]
     Dosage: UNK
     Route: 048
  24. LEVOTHYROXINE SODIUM [Concomitant]
  25. CIMETIDINE [Concomitant]
     Dosage: 300 MG, UNK
     Route: 042
  26. DIPHENHYDRAMINE HCL [Concomitant]
     Dosage: UP TO 50 MG
     Route: 042
  27. TAXOL [Concomitant]
     Dosage: UNK
     Dates: start: 20010701, end: 20010901
  28. NEXIUM [Concomitant]
     Dosage: UNK
  29. IBUPROFEN (ADVIL) [Concomitant]
     Dosage: UNK, PRN-ABOUT EVERY OTHER DAY
  30. ALPRAZOLAM [Concomitant]
     Dosage: 0.25 MG ONE HALF TABLET B.I.D.
  31. LUPRON [Concomitant]
  32. MULTI-VITAMINS [Concomitant]
  33. GLUCOPHAGE [Concomitant]
  34. GLUCOTROL [Concomitant]
  35. CARBOPLATIN [Concomitant]
     Dosage: 50 MG, 13 UNITS
     Route: 042
  36. LISINOPRIL [Concomitant]
     Dosage: 5 / DAILY
  37. ADVAIR DISKUS 100/50 [Concomitant]
  38. DEXAMETHASONE [Concomitant]
     Dosage: 4 MG, 5 UNITS
     Route: 048
  39. PEGFILGRASTIM [Concomitant]
  40. METFORMIN HCL [Concomitant]
     Dosage: UNK
  41. TRI-CHLOR [Concomitant]
     Dosage: UNK

REACTIONS (55)
  - HYPOAESTHESIA [None]
  - LIFE EXPECTANCY SHORTENED [None]
  - BONE NEOPLASM MALIGNANT [None]
  - NEOPLASM [None]
  - SKIN DISCOLOURATION [None]
  - BONE FRAGMENTATION [None]
  - RECURRENT CANCER [None]
  - PARONYCHIA [None]
  - PRURITUS [None]
  - PNEUMONIA [None]
  - TOOTH INFECTION [None]
  - AREFLEXIA [None]
  - ESCHAR [None]
  - AZOTAEMIA [None]
  - DYSPEPSIA [None]
  - AGE-RELATED MACULAR DEGENERATION [None]
  - ERYTHEMA [None]
  - OEDEMA [None]
  - SKIN ATROPHY [None]
  - DYSPNOEA [None]
  - BACK PAIN [None]
  - EMOTIONAL DISTRESS [None]
  - RASH PAPULAR [None]
  - ANAEMIA [None]
  - PERIPHERAL VASCULAR DISORDER [None]
  - PARAESTHESIA ORAL [None]
  - BONE LESION [None]
  - OSTEONECROSIS OF JAW [None]
  - TOOTH LOSS [None]
  - DEFORMITY [None]
  - ANXIETY [None]
  - GENERAL PHYSICAL HEALTH DETERIORATION [None]
  - MUCOSAL INFLAMMATION [None]
  - ARTHRALGIA [None]
  - LOCALISED INFECTION [None]
  - HYPERKERATOSIS [None]
  - NAIL HYPERTROPHY [None]
  - DENTAL FISTULA [None]
  - FATIGUE [None]
  - HYPOXIA [None]
  - PAIN [None]
  - DECREASED INTEREST [None]
  - DIABETES MELLITUS INADEQUATE CONTROL [None]
  - SKIN DISORDER [None]
  - METASTATIC NEOPLASM [None]
  - PROTEINURIA [None]
  - HYPOTHYROIDISM [None]
  - HYPOPHAGIA [None]
  - PAIN IN EXTREMITY [None]
  - LACRIMATION INCREASED [None]
  - SKIN ULCER [None]
  - LOOSE TOOTH [None]
  - INJURY [None]
  - NEUROPATHY PERIPHERAL [None]
  - DECREASED APPETITE [None]
